FAERS Safety Report 4750047-0 (Version None)
Quarter: 2005Q3

REPORT INFORMATION
  Report Type: 
  Country: None (occurrence: None)
  Receive Date: 20050822
  Receipt Date: 20050810
  Transmission Date: 20060218
  Serious: Yes (Life-Threatening, Other)
  Sender: FDA-Public Use
  Company Number: 2005-08-0871

PATIENT
  Age: 50 Year
  Sex: Female
  Weight: 81.6475 kg

DRUGS (6)
  1. CLARINEX [Suspect]
     Indication: ALLERGIC SINUSITIS
     Dosage: 1 TAB ORAL
     Route: 048
     Dates: start: 20050806, end: 20050806
  2. CLARINEX [Suspect]
     Indication: SINUS CONGESTION
     Dosage: 1 TAB ORAL
     Route: 048
     Dates: start: 20050806, end: 20050806
  3. CLARINEX [Suspect]
     Indication: ALLERGIC SINUSITIS
     Dosage: 1 TAB ORAL
     Route: 048
     Dates: start: 20050806, end: 20050808
  4. CLARINEX [Suspect]
     Indication: SINUS CONGESTION
     Dosage: 1 TAB ORAL
     Route: 048
     Dates: start: 20050806, end: 20050808
  5. CLARINEX [Suspect]
     Indication: ALLERGIC SINUSITIS
     Dosage: 1 TAB ORAL
     Route: 048
     Dates: start: 20050808, end: 20050808
  6. CLARINEX [Suspect]
     Indication: SINUS CONGESTION
     Dosage: 1 TAB ORAL
     Route: 048
     Dates: start: 20050808, end: 20050808

REACTIONS (4)
  - ANGIONEUROTIC OEDEMA [None]
  - BLOOD PRESSURE INCREASED [None]
  - HEART RATE INCREASED [None]
  - SWELLING [None]
